FAERS Safety Report 15106536 (Version 5)
Quarter: 2019Q1

REPORT INFORMATION
  Report Type: Report from Study
  Country: US (occurrence: US)
  Receive Date: 20180704
  Receipt Date: 20190107
  Transmission Date: 20190417
  Serious: Yes (Hospitalization, Other)
  Sender: FDA-Public Use
  Company Number: US-SA-2018SA164245

PATIENT
  Age: 70 Year
  Sex: Female

DRUGS (2)
  1. INSULIN GLARGINE [Suspect]
     Active Substance: INSULIN GLARGINE
     Dosage: 34 U, QD
     Route: 058
  2. INSULIN GLARGINE [Suspect]
     Active Substance: INSULIN GLARGINE
     Dosage: 28 IU, QD

REACTIONS (9)
  - Expired product administered [Unknown]
  - Cerebrovascular accident [Recovered/Resolved]
  - Staphylococcal infection [Recovered/Resolved]
  - Seasonal allergy [Unknown]
  - Blood glucose increased [Unknown]
  - Intentional product use issue [Unknown]
  - Confusional state [Unknown]
  - Arthralgia [Recovered/Resolved]
  - Memory impairment [Unknown]
